FAERS Safety Report 8468904-0 (Version None)
Quarter: 2012Q2

REPORT INFORMATION
  Report Type: 
  Country: None (occurrence: None)
  Receive Date: 20120621
  Receipt Date: 20120621
  Transmission Date: 20120825
  Serious: Yes (Hospitalization)
  Sender: FDA-Public Use
  Company Number: None

PATIENT
  Age: 76 Year
  Sex: Male
  Weight: 46.9 kg

DRUGS (1)
  1. AMOXICILLIN AND CLAVULANATE POTASSIUM [Suspect]
     Indication: GANGRENE
     Dosage: 1 TAB, BID, PO
     Route: 048
     Dates: start: 20120314, end: 20120324

REACTIONS (1)
  - CLOSTRIDIUM DIFFICILE COLITIS [None]
